FAERS Safety Report 4465155-1 (Version None)
Quarter: 2004Q3

REPORT INFORMATION
  Report Type: 
  Country: None (occurrence: None)
  Receive Date: 20040928
  Receipt Date: 20040928
  Transmission Date: 20050211
  Serious: No
  Sender: FDA-Public Use
  Company Number: None

PATIENT
  Age: 82 Year
  Sex: Female
  Weight: 39.9165 kg

DRUGS (1)
  1. INAPSINE [Suspect]
     Indication: NAUSEA
     Dosage: 0.625G IV X 1
     Route: 042
     Dates: start: 20040713

REACTIONS (3)
  - EXTRAPYRAMIDAL DISORDER [None]
  - RESPIRATORY RATE DECREASED [None]
  - SOMNOLENCE [None]
